FAERS Safety Report 5657467-0 (Version None)
Quarter: 2008Q1

REPORT INFORMATION
  Report Type: 
  Country: None (occurrence: None)
  Receive Date: 20080310
  Receipt Date: 20080227
  Transmission Date: 20080703
  Serious: Yes (Other)
  Sender: FDA-Public Use
  Company Number: US-PFIZER INC-2008019292

PATIENT

DRUGS (1)
  1. NORVASC [Suspect]
     Route: 048

REACTIONS (1)
  - PAPILLOEDEMA [None]
